FAERS Safety Report 23570344 (Version 1)
Quarter: 2024Q1

REPORT INFORMATION
  Report Type: Spontaneous
  Country: TR (occurrence: TR)
  Receive Date: 20240227
  Receipt Date: 20240227
  Transmission Date: 20240410
  Serious: Yes (Hospitalization)
  Sender: FDA-Public Use
  Company Number: TR-MYLANLABS-2024M1018131

PATIENT
  Age: 24 Year
  Sex: Male

DRUGS (5)
  1. PREGABALIN [Suspect]
     Active Substance: PREGABALIN
     Indication: Drug withdrawal syndrome
     Dosage: 3000 MILLIGRAM, QD[THE PATIENT STARTED INTERMITTENT SELF-TREATMENT WITH PREGABALIN (DRUG MISUSE)]
     Route: 065
  2. BUPRENORPHINE\NALOXONE [Concomitant]
     Active Substance: BUPRENORPHINE\NALOXONE
     Indication: Drug withdrawal syndrome
     Dosage: 8 MILLIGRAM, QD
     Route: 048
  3. BUPRENORPHINE\NALOXONE [Concomitant]
     Active Substance: BUPRENORPHINE\NALOXONE
     Indication: Drug withdrawal syndrome
     Dosage: 2 MILLIGRAM, QD  [THE PATIENT CHANGED HIS ORAL THERAPY OF BUPRENORPHINE/NALOXONE TO IV INJECTION FOL
     Route: 042
  4. BUPRENORPHINE\NALOXONE [Concomitant]
     Active Substance: BUPRENORPHINE\NALOXONE
     Dosage: UNK [OVER 3-4 MONTHS BEFORE THE PRESENTATION, THE PATIENT HAD BEEN RECEIVING BUPRENORPHINE/NALOXONE
     Route: 042
  5. TRAZODONE [Concomitant]
     Active Substance: TRAZODONE HYDROCHLORIDE
     Indication: Insomnia
     Dosage: 100 MILLIGRAM, QD
     Route: 065

REACTIONS (1)
  - Intentional product misuse [Unknown]
